FAERS Safety Report 5919899-2 (Version None)
Quarter: 2008Q3

REPORT INFORMATION
  Report Type: 
  Country: None (occurrence: None)
  Receive Date: 20080909
  Receipt Date: 20070806
  Transmission Date: 20090109
  Serious: Yes (Hospitalization)
  Sender: FDA-Public Use
  Company Number: 163-20785-07070401

PATIENT
  Age: 5 Year
  Sex: Male

DRUGS (2)
  1. THALOMID [Suspect]
     Indication: BRAIN NEOPLASM MALIGNANT
     Dosage: 100 MG, QD, ORAL ; 50 MG, 1 IN 1 D, ORAL
     Route: 048
     Dates: start: 20070601, end: 20070601
  2. THALOMID [Suspect]
     Indication: BRAIN NEOPLASM MALIGNANT
     Dosage: 100 MG, QD, ORAL ; 50 MG, 1 IN 1 D, ORAL
     Route: 048
     Dates: start: 20070601, end: 20070701

REACTIONS (1)
  - INFECTION [None]
